FAERS Safety Report 8376836-1 (Version None)
Quarter: 2012Q2

REPORT INFORMATION
  Report Type: 
  Country: None (occurrence: None)
  Receive Date: 20120522
  Receipt Date: 20120516
  Transmission Date: 20120825
  Serious: Yes (Hospitalization)
  Sender: FDA-Public Use
  Company Number: IT-SANOFI-AVENTIS-2012SA035181

PATIENT
  Age: 39 Year
  Sex: Male

DRUGS (1)
  1. HYDROXYCHLOROQUINE SULFATE [Suspect]
     Dosage: DAILY DOSE: 400/600
     Route: 065

REACTIONS (7)
  - DILATATION VENTRICULAR [None]
  - CARDIAC FAILURE [None]
  - PULMONARY OEDEMA [None]
  - SYSTOLIC DYSFUNCTION [None]
  - CARDIOMYOPATHY [None]
  - ELECTROCARDIOGRAM ABNORMAL [None]
  - CARDIAC HYPERTROPHY [None]
